FAERS Safety Report 7050120-0 (Version None)
Quarter: 2010Q4

REPORT INFORMATION
  Report Type: 
  Country: None (occurrence: None)
  Receive Date: 20101018
  Receipt Date: 20101008
  Transmission Date: 20110411
  Serious: Yes (Hospitalization)
  Sender: FDA-Public Use
  Company Number: AU-MERCK-1010USA00875

PATIENT
  Age: 69 Year
  Sex: Male

DRUGS (6)
  1. VYTORIN [Suspect]
     Route: 048
  2. COLGOUT [Suspect]
     Indication: GOUT
     Route: 048
     Dates: start: 20091118, end: 20091125
  3. COUMADIN [Concomitant]
     Route: 065
  4. MIXTARD HUMAN 70/30 [Concomitant]
     Route: 065
  5. SERETIDE [Concomitant]
     Route: 065
  6. ZANIDIP [Concomitant]
     Route: 065

REACTIONS (5)
  - ASTHENIA [None]
  - BLOOD CREATINE PHOSPHOKINASE INCREASED [None]
  - CHEST PAIN [None]
  - DEHYDRATION [None]
  - DIARRHOEA [None]
